FAERS Safety Report 9072768 (Version 1)
Quarter: 2013Q1

REPORT INFORMATION
  Report Type: Report from Study
  Country: US (occurrence: US)
  Receive Date: 20130129
  Receipt Date: 20130129
  Transmission Date: 20140127
  Serious: No
  Sender: FDA-Public Use
  Company Number: US-ABBOTT-12P-163-0936121-00

PATIENT
  Age: 30 Year
  Sex: Female

DRUGS (4)
  1. HUMIRA 40 MG/0.8 ML PEN [Suspect]
     Indication: CROHN^S DISEASE
     Dosage: LOADING DOSE
     Dates: start: 20120502, end: 20120502
  2. HUMIRA 40 MG/0.8 ML PEN [Suspect]
     Dates: start: 20120516, end: 20120516
  3. HUMIRA 40 MG/0.8 ML PEN [Suspect]
  4. PRILOSEC [Concomitant]
     Indication: DYSPEPSIA
     Dosage: DAILY

REACTIONS (2)
  - Incorrect dose administered [Unknown]
  - Injection site bruising [Not Recovered/Not Resolved]
